FAERS Safety Report 23087319 (Version 5)
Quarter: 2024Q2

REPORT INFORMATION
  Report Type: Spontaneous
  Country: US (occurrence: US)
  Receive Date: 20231020
  Receipt Date: 20240413
  Transmission Date: 20240716
  Serious: No
  Sender: FDA-Public Use
  Company Number: US-SA-SAC20231013001105

PATIENT
  Age: 62 Year
  Sex: Female
  Weight: 65.77 kg

DRUGS (7)
  1. DUPIXENT [Suspect]
     Active Substance: DUPILUMAB
     Indication: Dermatitis atopic
     Dosage: 300 MG, QOW
     Route: 058
     Dates: start: 20220804, end: 20231019
  2. DUPIXENT [Suspect]
     Active Substance: DUPILUMAB
     Indication: Eczema
  3. HYDROXYZINE PAMOATE [Concomitant]
     Active Substance: HYDROXYZINE PAMOATE
  4. PANTOPRAZOLE SODIUM [Concomitant]
     Active Substance: PANTOPRAZOLE SODIUM
  5. ACETAMINOPHEN\HYDROCODONE [Concomitant]
     Active Substance: ACETAMINOPHEN\HYDROCODONE
  6. ELIQUIS [Concomitant]
     Active Substance: APIXABAN
  7. PRIMROSE OIL [Concomitant]

REACTIONS (10)
  - Skin irritation [Unknown]
  - Rash erythematous [Not Recovered/Not Resolved]
  - Erythema [Unknown]
  - Dermatitis atopic [Not Recovered/Not Resolved]
  - Rash [Recovered/Resolved]
  - Feeling hot [Recovered/Resolved]
  - Facial pain [Recovered/Resolved]
  - Rash erythematous [Recovered/Resolved]
  - Swelling face [Not Recovered/Not Resolved]
  - Rash [Recovered/Resolved]

NARRATIVE: CASE EVENT DATE: 20230101
